FAERS Safety Report 12180985 (Version 1)
Quarter: 2016Q1

REPORT INFORMATION
  Report Type: Report from Study
  Country: US (occurrence: US)
  Receive Date: 20160315
  Receipt Date: 20160315
  Transmission Date: 20160526
  Serious: Yes (Death, Other)
  Sender: FDA-Public Use
  Company Number: US-BRISTOL-MYERS SQUIBB COMPANY-BMS-2016-016773

PATIENT
  Sex: Female
  Weight: 131 kg

DRUGS (8)
  1. MYCOPHENOLATE MOFETIL. [Concomitant]
     Active Substance: MYCOPHENOLATE MOFETIL
     Indication: PRODUCT USED FOR UNKNOWN INDICATION
     Dosage: 2000 MG, QD
     Route: 065
     Dates: start: 20120726
  2. BELATACEPT [Suspect]
     Active Substance: BELATACEPT
     Indication: RENAL TRANSPLANT
     Dosage: 1250 MG, UNK
     Route: 065
     Dates: start: 20120726
  3. BELATACEPT [Suspect]
     Active Substance: BELATACEPT
     Dosage: 1250 MG, UNK
     Route: 065
     Dates: start: 20130108
  4. TACROLIMUS. [Concomitant]
     Active Substance: TACROLIMUS
     Indication: PRODUCT USED FOR UNKNOWN INDICATION
     Dosage: UNK
     Route: 065
     Dates: start: 20120727, end: 20130108
  5. DACLIZUMAB [Concomitant]
     Active Substance: DACLIZUMAB
     Indication: PRODUCT USED FOR UNKNOWN INDICATION
     Dosage: 40 MG, UNK
     Route: 065
     Dates: start: 20120726, end: 20120729
  6. SIMULECT [Concomitant]
     Active Substance: BASILIXIMAB
     Indication: PRODUCT USED FOR UNKNOWN INDICATION
     Dosage: UNK
     Route: 065
     Dates: start: 20120726, end: 20120729
  7. BELATACEPT [Suspect]
     Active Substance: BELATACEPT
     Dosage: 1250 MG, UNK
     Route: 065
     Dates: start: 20120820
  8. BELATACEPT [Suspect]
     Active Substance: BELATACEPT
     Dosage: 1250 MG, UNK
     Route: 065
     Dates: start: 20130529

REACTIONS (1)
  - Cardiac failure [Fatal]
